FAERS Safety Report 10370940 (Version 1)
Quarter: 2014Q3

REPORT INFORMATION
  Report Type: Spontaneous
  Country: DE (occurrence: DE)
  Receive Date: 20140808
  Receipt Date: 20140808
  Transmission Date: 20150326
  Serious: Yes (Hospitalization)
  Sender: FDA-Public Use
  Company Number: DE-TEVA-499088GER

PATIENT
  Age: 63 Year
  Sex: Male

DRUGS (3)
  1. PREDNISOLONE. [Suspect]
     Active Substance: PREDNISOLONE
     Indication: HYPOPHYSITIS
     Dosage: 50 MILLIGRAM DAILY; 50MG PER DAY
     Route: 065
  2. IPILIMUMAB [Suspect]
     Active Substance: IPILIMUMAB
     Indication: PROSTATE CANCER
     Dosage: CYCLICAL; 10 MG/KG
     Route: 065
  3. LEVOTHYROXINE [Concomitant]
     Active Substance: LEVOTHYROXINE
     Route: 065

REACTIONS (3)
  - Diabetes mellitus [Unknown]
  - Memory impairment [Unknown]
  - Weight increased [Unknown]
